FAERS Safety Report 25507300 (Version 1)
Quarter: 2025Q3

REPORT INFORMATION
  Report Type: Spontaneous
  Country: EU (occurrence: EU)
  Receive Date: 20250703
  Receipt Date: 20250703
  Transmission Date: 20251021
  Serious: Yes (Hospitalization, Other)
  Sender: ABBVIE
  Company Number: EU-ABBVIE-6352959

PATIENT
  Age: 58 Year
  Sex: Male

DRUGS (1)
  1. FOSCARBIDOPA\FOSLEVODOPA [Suspect]
     Active Substance: FOSCARBIDOPA\FOSLEVODOPA
     Indication: Parkinson^s disease
     Route: 058

REACTIONS (3)
  - Suicidal ideation [Recovering/Resolving]
  - Infusion site inflammation [Recovering/Resolving]
  - Depression [Recovering/Resolving]

NARRATIVE: CASE EVENT DATE: 20250508
